FAERS Safety Report 20947150 (Version 1)
Quarter: 2022Q2

REPORT INFORMATION
  Report Type: Other
  Country: None (occurrence: NL)
  Receive Date: 20220610
  Receipt Date: 20220610
  Transmission Date: 20220721
  Serious: Yes (Hospitalization, Other)
  Sender: FDA-Public Use
  Company Number: NL-BIOLOGICAL E. LTD-2129733

PATIENT
  Age: 77 Year
  Sex: Male

DRUGS (1)
  1. HEPARIN SODIUM [Suspect]
     Active Substance: HEPARIN SODIUM
     Indication: Coagulation time
     Route: 065

REACTIONS (3)
  - Intentional overdose [Unknown]
  - Post procedural haemorrhage [Unknown]
  - Therapeutic product effect incomplete [Unknown]
